FAERS Safety Report 11081016 (Version 1)
Quarter: 2015Q2

REPORT INFORMATION
  Report Type: Spontaneous
  Country: US (occurrence: None)
  Receive Date: 20150429
  Receipt Date: 20150429
  Transmission Date: 20150821
  Serious: Yes (Other)
  Sender: FDA-Public Use
  Company Number: COR_00116_2014

PATIENT

DRUGS (3)
  1. CARBOPLATIN. [Suspect]
     Active Substance: CARBOPLATIN
     Indication: NEOPLASM
     Dosage: AUC 5 , ON DAY 1 OF A 21 DAY CYCLE, 1 CYCLE
  2. GEMCITABINE [Suspect]
     Active Substance: GEMCITABINE\GEMCITABINE HYDROCHLORIDE
     Indication: NEOPLASM
     Dosage: ON DAY 1 AND DAY 8 OF A 21 DAY CYCLE
     Route: 042
  3. DOVITINIB [Suspect]
     Active Substance: DOVITINIB LACTATE
     Indication: NEOPLASM
     Dosage: 200 MG [1 CYCLE]
     Route: 048

REACTIONS (2)
  - Toxicity to various agents [None]
  - Febrile neutropenia [None]
